FAERS Safety Report 11252088 (Version 1)
Quarter: 2015Q3

REPORT INFORMATION
  Report Type: Spontaneous
  Country: US (occurrence: US)
  Receive Date: 20150708
  Receipt Date: 20150708
  Transmission Date: 20151125
  Serious: No
  Sender: FDA-Public Use
  Company Number: US-ELI_LILLY_AND_COMPANY-US201303002189

PATIENT
  Sex: Female

DRUGS (1)
  1. AMYVID [Suspect]
     Active Substance: FLORBETAPIR F-18
     Indication: DEMENTIA ALZHEIMER^S TYPE
     Dosage: 11.2 MBQ, OTHER

REACTIONS (2)
  - Injection site discomfort [Unknown]
  - Headache [Recovered/Resolved]
